FAERS Safety Report 9526895 (Version 1)
Quarter: 2013Q3

REPORT INFORMATION
  Report Type: Spontaneous
  Country: US (occurrence: US)
  Receive Date: 20130916
  Receipt Date: 20130916
  Transmission Date: 20140515
  Serious: Yes (Death)
  Sender: FDA-Public Use
  Company Number: US-ROCHE-1274516

PATIENT
  Sex: Female

DRUGS (14)
  1. XELODA [Suspect]
     Indication: COLON CANCER
     Dosage: ON FOR 7 DAYS, OFF FOR 7 DAYS
     Route: 048
     Dates: start: 20130612
  2. COREG [Concomitant]
  3. PLAVIX [Concomitant]
  4. ASPIRIN [Concomitant]
  5. LYRICA [Concomitant]
  6. METFORMIN [Concomitant]
     Route: 065
  7. OXYCONTIN [Concomitant]
  8. DILAUDID [Concomitant]
  9. COLACE [Concomitant]
  10. PROTONIX (OMEPRAZOLE) [Concomitant]
  11. ZOFRAN [Concomitant]
  12. HUMALOG [Concomitant]
  13. LANTUS [Concomitant]
  14. BENTYL [Concomitant]

REACTIONS (1)
  - Death [Fatal]
